FAERS Safety Report 13095383 (Version 1)
Quarter: 2017Q1

REPORT INFORMATION
  Report Type: Spontaneous
  Country: US (occurrence: US)
  Receive Date: 20170108
  Receipt Date: 20170108
  Transmission Date: 20170428
  Serious: No
  Sender: FDA-Public Use
  Company Number: US-DRREDDYS-USA/USA/15/0055068

PATIENT
  Age: 35 Year
  Sex: Female
  Weight: 83.4 kg

DRUGS (1)
  1. HABITROL [Suspect]
     Active Substance: NICOTINE
     Indication: SMOKING CESSATION THERAPY
     Route: 061

REACTIONS (6)
  - Application site rash [Not Recovered/Not Resolved]
  - Nicotine dependence [Not Recovered/Not Resolved]
  - Abnormal dreams [Not Recovered/Not Resolved]
  - Treatment noncompliance [Unknown]
  - Urticaria [Unknown]
  - Product quality issue [Unknown]

NARRATIVE: CASE EVENT DATE: 20151216
